FAERS Safety Report 14459601 (Version 1)
Quarter: 2018Q1

REPORT INFORMATION
  Report Type: Spontaneous
  Country: US (occurrence: US)
  Receive Date: 20180129
  Receipt Date: 20180129
  Transmission Date: 20180509
  Serious: Yes (Life-Threatening)
  Sender: FDA-Public Use
  Company Number: None

PATIENT
  Age: 58 Year
  Sex: Male
  Weight: 68.1 kg

DRUGS (7)
  1. BISACODYL. [Concomitant]
     Active Substance: BISACODYL
  2. FAMOTIDINE. [Concomitant]
     Active Substance: FAMOTIDINE
  3. NROEPINEPHRINE [Concomitant]
  4. AMIODARONE [Suspect]
     Active Substance: AMIODARONE
     Indication: TACHYCARDIA
     Dosage: ?          OTHER FREQUENCY:ONE TIME ONLY;?
     Route: 040
     Dates: start: 20180127
  5. DUONEB [Concomitant]
     Active Substance: ALBUTEROL SULFATE\IPRATROPIUM BROMIDE
  6. ERTAPENEM. [Concomitant]
     Active Substance: ERTAPENEM SODIUM
  7. FENTANYL DRIP [Concomitant]

REACTIONS (2)
  - Hypotension [None]
  - Pulse absent [None]

NARRATIVE: CASE EVENT DATE: 20180127
